FAERS Safety Report 15336190 (Version 1)
Quarter: 2018Q3

REPORT INFORMATION
  Report Type: Spontaneous
  Country: US (occurrence: US)
  Receive Date: 20180830
  Receipt Date: 20180830
  Transmission Date: 20181010
  Serious: No
  Sender: FDA-Public Use
  Company Number: US-TEVA-2018-US-948567

PATIENT
  Age: 78 Year
  Sex: Female

DRUGS (2)
  1. ALENDTAB?A [Suspect]
     Active Substance: ALENDRONIC ACID
     Indication: OSTEOPOROSIS
     Dosage: FORM STRENGTH: 70 UNIT NOT REPORTED
     Route: 065
     Dates: start: 201610, end: 2018
  2. ALENDTAB?A [Suspect]
     Active Substance: ALENDRONIC ACID
     Dosage: FORM STRENGTH: 70 UNIT NOT REPORTED
     Route: 065
     Dates: start: 20180815

REACTIONS (1)
  - Pain in extremity [Not Recovered/Not Resolved]

NARRATIVE: CASE EVENT DATE: 201806
